FAERS Safety Report 13312310 (Version 1)
Quarter: 2017Q1

REPORT INFORMATION
  Report Type: Spontaneous
  Country: FR (occurrence: FR)
  Receive Date: 20170309
  Receipt Date: 20170309
  Transmission Date: 20170428
  Serious: Yes (Life-Threatening)
  Sender: FDA-Public Use
  Company Number: FR-ALSI-201700068

PATIENT
  Age: 26 Year
  Sex: Male

DRUGS (1)
  1. OXYGEN MEDICINAL [Suspect]
     Active Substance: OXYGEN
     Indication: PRODUCT USED FOR UNKNOWN INDICATION
     Route: 055

REACTIONS (5)
  - Oxygen saturation decreased [None]
  - Hypoxia [None]
  - Respiratory distress [None]
  - Cyanosis [None]
  - Accidental underdose [None]
